FAERS Safety Report 10431362 (Version 2)
Quarter: 2014Q3

REPORT INFORMATION
  Report Type: Spontaneous
  Country: US (occurrence: None)
  Receive Date: 20140903
  Receipt Date: 20140929
  Transmission Date: 20150326
  Serious: Yes (Hospitalization)
  Sender: FDA-Public Use
  Company Number: 2014US003606

PATIENT
  Age: 63 Year
  Sex: Female
  Weight: 48 kg

DRUGS (7)
  1. PONATINIB [Suspect]
     Active Substance: PONATINIB
     Indication: GASTROINTESTINAL STROMAL TUMOUR
     Route: 048
     Dates: start: 20140806
  2. FERROUS SULFATE [Concomitant]
     Active Substance: FERROUS SULFATE\FERROUS SULFATE, DRIED
  3. OXYCODONE [Concomitant]
     Active Substance: OXYCODONE
  4. DEXTRIN [Concomitant]
     Active Substance: ICODEXTRIN
  5. DOCUSATE SODIUM) [Concomitant]
  6. LISINOPRIL (LISINOPRIL DEHYDRATE) [Concomitant]
  7. DOCUSATE W/SENNA [Concomitant]

REACTIONS (3)
  - Obstruction [None]
  - Small intestinal obstruction [None]
  - Vomiting [None]

NARRATIVE: CASE EVENT DATE: 20140816
